FAERS Safety Report 4467198-0 (Version None)
Quarter: 2004Q4

REPORT INFORMATION
  Report Type: 
  Country: None (occurrence: None)
  Receive Date: 20041006
  Receipt Date: 20030605
  Transmission Date: 20050328
  Serious: Yes (Hospitalization, Other)
  Sender: FDA-Public Use
  Company Number: US-MERCK-0306USA00743

PATIENT
  Age: 46 Year
  Sex: Male

DRUGS (8)
  1. ASPIRIN [Concomitant]
     Route: 065
  2. LIPITOR [Concomitant]
     Route: 065
  3. CELEXA [Concomitant]
     Route: 065
  4. CARDIZEM CD [Concomitant]
     Route: 065
  5. CARDIZEM CD [Concomitant]
     Route: 065
  6. LEVSIN PB [Concomitant]
     Route: 065
  7. PRILOSEC [Concomitant]
     Route: 048
  8. VIOXX [Suspect]
     Indication: BACK PAIN
     Route: 048
     Dates: start: 20010518

REACTIONS (6)
  - ACUTE MYOCARDIAL INFARCTION [None]
  - ADVERSE EVENT [None]
  - ANGINA PECTORIS [None]
  - BLOOD PRESSURE INCREASED [None]
  - CONVULSION [None]
  - CORONARY ARTERY RESTENOSIS [None]
